FAERS Safety Report 10928302 (Version 1)
Quarter: 2015Q1

REPORT INFORMATION
  Report Type: Spontaneous
  Country: US (occurrence: None)
  Receive Date: 20150203
  Receipt Date: 20150203
  Transmission Date: 20150721
  Serious: Yes (Other)
  Sender: FDA-Public Use
  Company Number: TPA2011A01000

PATIENT
  Age: 43 Year
  Sex: Female

DRUGS (12)
  1. PROZAC [Concomitant]
     Active Substance: FLUOXETINE HYDROCHLORIDE
  2. LYRICA [Concomitant]
     Active Substance: PREGABALIN
  3. DEXILANT [Suspect]
     Active Substance: DEXLANSOPRAZOLE
     Indication: GASTROOESOPHAGEAL REFLUX DISEASE
     Dates: start: 20110214, end: 20110220
  4. VITAMIN D (ERGOCALCIFEROL) [Concomitant]
     Active Substance: ERGOCALCIFEROL
  5. VICODIN ES (PARACETAMOL, HYDROCODONE BITARTRATE) [Concomitant]
  6. VALIUM [Concomitant]
     Active Substance: DIAZEPAM
  7. WELLBUTRIN [Concomitant]
     Active Substance: BUPROPION HYDROCHLORIDE
  8. MIRAPEX [Concomitant]
     Active Substance: PRAMIPEXOLE DIHYDROCHLORIDE
  9. ACTIQ (FENTANYL CITRATE) [Concomitant]
  10. B12 (CYANOCOBALAMIN) [Concomitant]
  11. METHADONE [Concomitant]
     Active Substance: METHADONE HYDROCHLORIDE
  12. CLARINEX (PSEUDOEPHEDRINE SULFATE, LORATADINE) [Concomitant]

REACTIONS (1)
  - Stevens-Johnson syndrome [None]

NARRATIVE: CASE EVENT DATE: 20110220
